FAERS Safety Report 21888822 (Version 1)
Quarter: 2023Q1

REPORT INFORMATION
  Report Type: Spontaneous
  Country: DK (occurrence: DK)
  Receive Date: 20230120
  Receipt Date: 20230120
  Transmission Date: 20230417
  Serious: Yes (Congenital Anomaly)
  Sender: FDA-Public Use
  Company Number: None

PATIENT
  Age: 17 Week

DRUGS (4)
  1. TACROLIMUS [Suspect]
     Active Substance: TACROLIMUS
     Indication: Foetal exposure during pregnancy
     Dosage: MATERNAL DOSE: 3 MG BID FROM 24 APR 2021 (2 AND 3 MG ALTERNATING DAILY)
     Route: 065
  2. TACROLIMUS [Suspect]
     Active Substance: TACROLIMUS
     Dosage: MATERNAL DOSE: 2 MG BID FROM 24 APR 2021 (2 AND 3 MG ALTERNATING DAILY)
     Route: 065
  3. ONDANSETRON [Concomitant]
     Active Substance: ONDANSETRON
     Indication: Foetal exposure during pregnancy
     Dosage: MATERNAL DOSE: STARTED ON 19 JUL 2021 AT A DOSE OF 4 MG X 3 AS NECESSARY
     Route: 065
  4. CYCLIZINE HYDROCHLORIDE [Concomitant]
     Active Substance: CYCLIZINE HYDROCHLORIDE
     Indication: Foetal exposure during pregnancy
     Dosage: MATERNAL DOSE: 50 MG AS NECESSARY FROM 19 JUL 2021
     Route: 065

REACTIONS (2)
  - Renal dysplasia [Not Recovered/Not Resolved]
  - Foetal exposure during pregnancy [Not Recovered/Not Resolved]

NARRATIVE: CASE EVENT DATE: 20210927
